FAERS Safety Report 13733557 (Version 1)
Quarter: 2017Q3

REPORT INFORMATION
  Report Type: Spontaneous
  Country: FR (occurrence: FR)
  Receive Date: 20170707
  Receipt Date: 20170707
  Transmission Date: 20171127
  Serious: Yes (Death)
  Sender: FDA-Public Use
  Company Number: FR-BAUSCH-BL-2017-019996

PATIENT
  Age: 63 Year
  Sex: Female

DRUGS (3)
  1. OXALIPLATIN. [Concomitant]
     Active Substance: OXALIPLATIN
     Indication: PRODUCT USED FOR UNKNOWN INDICATION
  2. LEUCOVORIN. [Concomitant]
     Active Substance: LEUCOVORIN
     Indication: PRODUCT USED FOR UNKNOWN INDICATION
  3. FLUOROURACIL. [Suspect]
     Active Substance: FLUOROURACIL
     Indication: COLORECTAL ADENOCARCINOMA
     Dosage: INTRAVENOUS INFUSION
     Route: 042

REACTIONS (23)
  - Toxicity to various agents [Fatal]
  - Metabolic acidosis [Fatal]
  - Injury [Fatal]
  - Bicytopenia [Fatal]
  - Coagulopathy [Fatal]
  - Hyperlactacidaemia [Fatal]
  - Septic shock [Fatal]
  - Cardiac arrest [Fatal]
  - Intracranial pressure increased [Fatal]
  - Intracranial haematoma [Fatal]
  - Enterocolitis [Fatal]
  - Multiple organ dysfunction syndrome [Fatal]
  - Gastrointestinal injury [Fatal]
  - Pneumatosis intestinalis [Fatal]
  - Escherichia infection [Fatal]
  - Hepatocellular injury [Fatal]
  - Vulvovaginal inflammation [Fatal]
  - Mucosal inflammation [Fatal]
  - Renal failure [Fatal]
  - Sepsis [Fatal]
  - Anal inflammation [Fatal]
  - Pancytopenia [Fatal]
  - Enterobacter infection [Fatal]
